FAERS Safety Report 8344277-9 (Version None)
Quarter: 2012Q2

REPORT INFORMATION
  Report Type: 
  Country: None (occurrence: None)
  Receive Date: 20120508
  Receipt Date: 20120430
  Transmission Date: 20120825
  Serious: Yes (Other)
  Sender: FDA-Public Use
  Company Number: DE-B.I. PHARMACEUTICALS,INC./RIDGEFIELD-2012-DE-01158DE

PATIENT
  Age: 69 Year
  Sex: Female
  Weight: 91 kg

DRUGS (6)
  1. NEXIUM [Concomitant]
     Indication: GASTRIC DISORDER
  2. BETABLOCKER TENORMIN [Concomitant]
     Indication: HEART RATE INCREASED
  3. IBEROGAST [Concomitant]
     Indication: GASTRIC DISORDER
     Dosage: 60 ANZ
  4. SAP SIMPLEX [Concomitant]
     Indication: GASTRIC DISORDER
     Dosage: 120 ANZ
  5. PRADAXA [Suspect]
     Indication: ATRIAL FIBRILLATION
     Dosage: 220 MG
     Dates: start: 20110929
  6. LEVOTHYROXINE SODIUM [Concomitant]
     Indication: HYPOTHYROIDISM
     Dosage: 50 MG

REACTIONS (2)
  - DYSPEPSIA [None]
  - CARDIAC ABLATION [None]
